FAERS Safety Report 18161340 (Version 1)
Quarter: 2020Q3

REPORT INFORMATION
  Report Type: Spontaneous
  Country: US (occurrence: US)
  Receive Date: 20200817
  Receipt Date: 20200817
  Transmission Date: 20201103
  Serious: Yes (Hospitalization)
  Sender: FDA-Public Use
  Company Number: US-PRINSTON PHARMACEUTICAL INC.-2020PRN00274

PATIENT
  Sex: Female

DRUGS (11)
  1. UNSPECIFIED 3 MEDICATIONS THAT HAD A POSSIBLE SIDE EFFECT OF HIGH BLOO [Suspect]
     Active Substance: UNSPECIFIED INGREDIENT
     Dosage: UNK
     Dates: start: 202005
  2. LISINOPRIL. [Suspect]
     Active Substance: LISINOPRIL
     Indication: HYPERTENSION
     Dosage: 40 MG
     Dates: start: 2020, end: 2020
  3. DILTIAZEM. [Suspect]
     Active Substance: DILTIAZEM
     Dosage: 300 MG
     Dates: start: 2020, end: 2020
  4. UNSPECIFIED 3 MEDICATIONS THAT HAD A POSSIBLE SIDE EFFECT OF HIGH BLOO [Suspect]
     Active Substance: UNSPECIFIED INGREDIENT
     Dosage: UNK
     Dates: end: 20200415
  5. XELJANZ XR [Suspect]
     Active Substance: TOFACITINIB CITRATE
     Dosage: 11 MG, 1X/DAY
     Route: 048
     Dates: start: 20200513
  6. SPIRONOLACTONE. [Suspect]
     Active Substance: SPIRONOLACTONE
     Dosage: 50 MG
     Dates: start: 2020
  7. XELJANZ XR [Suspect]
     Active Substance: TOFACITINIB CITRATE
     Indication: PSORIATIC ARTHROPATHY
     Dosage: 11 MG, 1X/DAY
     Route: 048
     Dates: start: 2018, end: 20200415
  8. LISINOPRIL. [Suspect]
     Active Substance: LISINOPRIL
     Dosage: 10 MG
     Dates: start: 2020
  9. DILTIAZEM. [Suspect]
     Active Substance: DILTIAZEM
     Indication: HYPERTENSION
     Dosage: 120 MG
     Dates: end: 2020
  10. DILTIAZEM. [Suspect]
     Active Substance: DILTIAZEM
     Dosage: 120 MG
     Dates: start: 2020
  11. SPIRONOLACTONE. [Suspect]
     Active Substance: SPIRONOLACTONE
     Indication: HYPERTENSION
     Dosage: 25 MG
     Dates: end: 2020

REACTIONS (1)
  - Intracranial aneurysm [Recovered/Resolved]

NARRATIVE: CASE EVENT DATE: 20200417
